FAERS Safety Report 4620176-0 (Version None)
Quarter: 2005Q1

REPORT INFORMATION
  Report Type: 
  Country: None (occurrence: None)
  Receive Date: 20050324
  Receipt Date: 20050310
  Transmission Date: 20050727
  Serious: Yes (Hospitalization)
  Sender: FDA-Public Use
  Company Number: ES-2004-033840

PATIENT
  Sex: Female

DRUGS (1)
  1. ULTRAVIST (PHARMACY BULK) [Suspect]
     Indication: UROGRAPHY
     Dosage: 70 ML, 1 DOSE, INTRAVENOUS
     Route: 042

REACTIONS (5)
  - FEELING HOT [None]
  - LOSS OF CONSCIOUSNESS [None]
  - MUSCLE CONTRACTURE [None]
  - PULSE ABSENT [None]
  - URTICARIA [None]
